FAERS Safety Report 25715036 (Version 1)
Quarter: 2025Q3

REPORT INFORMATION
  Report Type: Spontaneous
  Country: US (occurrence: None)
  Receive Date: 20250821
  Receipt Date: 20250821
  Transmission Date: 20251020
  Serious: Yes (Death)
  Sender: FDA-CTU
  Company Number: None

PATIENT
  Age: 43 Year
  Sex: Female

DRUGS (2)
  1. AMBRISENTAN [Suspect]
     Active Substance: AMBRISENTAN
     Indication: Pulmonary hypertension
     Dates: start: 20191010, end: 20250819
  2. LASIX [Suspect]
     Active Substance: FUROSEMIDE

REACTIONS (5)
  - Cardiac failure congestive [None]
  - Respiratory failure [None]
  - Chronic obstructive pulmonary disease [None]
  - Therapy interrupted [None]
  - Treatment noncompliance [None]

NARRATIVE: CASE EVENT DATE: 20250819
